FAERS Safety Report 21247498 (Version 4)
Quarter: 2023Q1

REPORT INFORMATION
  Report Type: Report from Study
  Country: JP (occurrence: JP)
  Receive Date: 20220824
  Receipt Date: 20230214
  Transmission Date: 20230418
  Serious: Yes (Hospitalization)
  Sender: FDA-Public Use
  Company Number: JP-CHUGAI-2022032120

PATIENT
  Age: 51 Year
  Sex: Female
  Weight: 55 kg

DRUGS (14)
  1. ATEZOLIZUMAB [Suspect]
     Active Substance: ATEZOLIZUMAB
     Indication: Hormone receptor positive breast cancer
     Dosage: 840 MILLIGRAM?MOST RECENT DOSE RECEIVED ON 20/JUN/2022
     Route: 042
     Dates: start: 20211015
  2. ATEZOLIZUMAB [Suspect]
     Active Substance: ATEZOLIZUMAB
     Indication: HER2 negative breast cancer
  3. ATEZOLIZUMAB [Suspect]
     Active Substance: ATEZOLIZUMAB
     Indication: Breast cancer
  4. FEMARA [Suspect]
     Active Substance: LETROZOLE
     Indication: Hormone receptor positive breast cancer
     Dosage: 2.5 MILLIGRAM, QD
     Route: 048
     Dates: start: 20220712, end: 20220815
  5. FEMARA [Suspect]
     Active Substance: LETROZOLE
     Indication: HER2 negative breast cancer
  6. FEMARA [Suspect]
     Active Substance: LETROZOLE
     Indication: Breast cancer
  7. VERZENIO [Suspect]
     Active Substance: ABEMACICLIB
     Indication: Hormone receptor positive breast cancer
     Route: 048
     Dates: start: 20220712, end: 20220808
  8. VERZENIO [Suspect]
     Active Substance: ABEMACICLIB
     Indication: HER2 negative breast cancer
  9. VERZENIO [Suspect]
     Active Substance: ABEMACICLIB
     Indication: Breast cancer
  10. AVASTIN [Concomitant]
     Active Substance: BEVACIZUMAB
     Indication: Hormone receptor positive breast cancer
     Dosage: 10 MILLIGRAM/KILOGRAM, DAY1, 15
     Route: 041
     Dates: start: 20211015, end: 20220620
  11. AVASTIN [Concomitant]
     Active Substance: BEVACIZUMAB
     Indication: HER2 negative breast cancer
  12. PACLITAXEL [Concomitant]
     Active Substance: PACLITAXEL
     Indication: Hormone receptor positive breast cancer
     Dosage: 90 MILLIGRAM/SQ. METER, DAY1, 8, 15
     Route: 042
     Dates: start: 20211015, end: 20220620
  13. PACLITAXEL [Concomitant]
     Active Substance: PACLITAXEL
     Indication: HER2 negative breast cancer
  14. FLUNITRAZEPAM [Concomitant]
     Active Substance: FLUNITRAZEPAM
     Indication: Insomnia
     Dosage: 1 MILLIGRAM, PRN
     Route: 048
     Dates: start: 20210917

REACTIONS (1)
  - Hepatic function abnormal [Recovered/Resolved]

NARRATIVE: CASE EVENT DATE: 20220815
